FAERS Safety Report 7630728-1 (Version None)
Quarter: 2011Q3

REPORT INFORMATION
  Report Type: 
  Country: None (occurrence: None)
  Receive Date: 20110722
  Receipt Date: 20110719
  Transmission Date: 20111222
  Serious: Yes (Other)
  Sender: FDA-Public Use
  Company Number: ES-MERCK-1103ESP00069

PATIENT
  Age: 30 Month
  Sex: Female

DRUGS (2)
  1. SINGULAIR [Suspect]
     Indication: BRONCHIOLITIS
     Route: 048
     Dates: start: 20101101
  2. FLUTICASONE PROPIONATE [Suspect]
     Indication: BRONCHIOLITIS
     Route: 055
     Dates: start: 20101101, end: 20110401

REACTIONS (1)
  - ERYTHEMA MULTIFORME [None]
